FAERS Safety Report 17159690 (Version 2)
Quarter: 2019Q4

REPORT INFORMATION
  Report Type: Spontaneous
  Country: BE (occurrence: BE)
  Receive Date: 20191216
  Receipt Date: 20191223
  Transmission Date: 20200122
  Serious: Yes (Other)
  Sender: FDA-Public Use
  Company Number: BE-PFIZER INC-2019534426

PATIENT
  Age: 48 Year
  Sex: Male

DRUGS (6)
  1. VALPROIC ACID. [Interacting]
     Active Substance: VALPROIC ACID
     Indication: EPILEPSY
     Dosage: UNK
     Dates: start: 2019
  2. MEROPENEM. [Suspect]
     Active Substance: MEROPENEM
     Indication: CAMPYLOBACTER INFECTION
     Dosage: 2 G, 3X/DAY IN LONG INFUSION OVER 3 HOURS
     Dates: start: 2019
  3. LEVETIRACETAM. [Concomitant]
     Active Substance: LEVETIRACETAM
     Indication: EPILEPSY
     Dosage: UNK
     Dates: start: 2019
  4. CEFTRIAXONE. [Concomitant]
     Active Substance: CEFTRIAXONE
     Indication: MENINGITIS BACTERIAL
     Dosage: 2 G, 2X/DAY
     Dates: start: 2019
  5. ACICLOVIR [Concomitant]
     Active Substance: ACYCLOVIR
     Indication: MENINGITIS BACTERIAL
     Dosage: 10 MG/KG, 3X/DAY
     Dates: start: 2019
  6. TEMOZOLOMIDE. [Interacting]
     Active Substance: TEMOZOLOMIDE
     Indication: ANAPLASTIC ASTROCYTOMA
     Dosage: UNK UNK, CYCLIC
     Route: 048
     Dates: start: 2019

REACTIONS (3)
  - Anticonvulsant drug level below therapeutic [Unknown]
  - Drug interaction [Unknown]
  - Generalised tonic-clonic seizure [Unknown]

NARRATIVE: CASE EVENT DATE: 2019
